FAERS Safety Report 25956872 (Version 1)
Quarter: 2025Q4

REPORT INFORMATION
  Report Type: Spontaneous
  Country: RU (occurrence: RU)
  Receive Date: 20251024
  Receipt Date: 20251024
  Transmission Date: 20260119
  Serious: Yes (Disabling)
  Sender: ROCHE
  Company Number: RU-002147023-NVSC2025RU161995

PATIENT
  Age: 50 Year
  Sex: Female
  Weight: 90 kg

DRUGS (1)
  1. XOLAIR [Suspect]
     Active Substance: OMALIZUMAB
     Indication: Idiopathic urticaria
     Dosage: 1 ML, QMO (SINGLE DOSE)
     Route: 058

REACTIONS (2)
  - Muscular weakness [Recovering/Resolving]
  - Somnolence [Recovering/Resolving]
